FAERS Safety Report 6004643-3 (Version None)
Quarter: 2008Q4

REPORT INFORMATION
  Report Type: 
  Country: None (occurrence: None)
  Receive Date: 20081216
  Receipt Date: 20081212
  Transmission Date: 20090506
  Serious: Yes (Other)
  Sender: FDA-Public Use
  Company Number: US-PFIZER INC-2006024559

PATIENT
  Sex: Male

DRUGS (6)
  1. CELEBREX [Suspect]
     Indication: PAIN
     Dates: start: 20010101, end: 20010101
  2. CELEBREX [Suspect]
     Indication: ANKYLOSING SPONDYLITIS
  3. BEXTRA [Suspect]
     Indication: ANKYLOSING SPONDYLITIS
  4. OPIOIDS [Suspect]
  5. NIFEDIPINE [Concomitant]
     Route: 048
     Dates: start: 19960101
  6. ATENOLOL [Concomitant]
     Route: 048
     Dates: start: 19960101

REACTIONS (10)
  - DEPRESSION [None]
  - FATIGUE [None]
  - GENERAL PHYSICAL HEALTH DETERIORATION [None]
  - IMMOBILE [None]
  - INTENTIONAL DRUG MISUSE [None]
  - MENTAL IMPAIRMENT [None]
  - MONOPLEGIA [None]
  - MUSCULOSKELETAL STIFFNESS [None]
  - NEPHRECTOMY [None]
  - PAIN [None]
